FAERS Safety Report 10084225 (Version 1)
Quarter: 2014Q2

REPORT INFORMATION
  Report Type: Spontaneous
  Country: US (occurrence: US)
  Receive Date: 20140417
  Receipt Date: 20140417
  Transmission Date: 20141212
  Serious: Yes (Hospitalization)
  Sender: FDA-Public Use
  Company Number: US-SHIRE-US201401264

PATIENT
  Age: 9 Year
  Sex: Male

DRUGS (2)
  1. VYVANSE [Suspect]
     Indication: PRODUCT USED FOR UNKNOWN INDICATION
     Dosage: 70 MG, UNKNOWN
     Route: 048
  2. VYVANSE [Suspect]
     Dosage: 40 MG, UNKNOWN
     Route: 048

REACTIONS (2)
  - Psychotic disorder [Unknown]
  - Hallucination, auditory [Unknown]
